FAERS Safety Report 7225148-8 (Version None)
Quarter: 2011Q1

REPORT INFORMATION
  Report Type: 
  Country: None (occurrence: None)
  Receive Date: 20110113
  Receipt Date: 20110106
  Transmission Date: 20110831
  Serious: Yes (Death)
  Sender: FDA-Public Use
  Company Number: A0903710A

PATIENT
  Age: 75 Year
  Sex: Female

DRUGS (10)
  1. SERTRALINE [Concomitant]
  2. ZETIA [Concomitant]
  3. ALBUTEROL [Concomitant]
  4. LOVASTATIN [Concomitant]
  5. FUROSEMIDE [Concomitant]
  6. OMEPRAZOLE [Concomitant]
  7. ADVAIR HFA [Suspect]
     Indication: CHRONIC OBSTRUCTIVE PULMONARY DISEASE
     Dosage: 1PUFF TWICE PER DAY
     Route: 055
     Dates: start: 20080101
  8. METHIMAZOLE [Concomitant]
  9. ATENOLOL [Concomitant]
  10. CLONAZEPAM [Concomitant]

REACTIONS (4)
  - RESPIRATORY ARREST [None]
  - VITAL FUNCTIONS ABNORMAL [None]
  - DEATH [None]
  - BRAIN DEATH [None]
